FAERS Safety Report 23957393 (Version 1)
Quarter: 2024Q2

REPORT INFORMATION
  Report Type: Report from Study
  Country: TR (occurrence: TR)
  Receive Date: 20240610
  Receipt Date: 20240610
  Transmission Date: 20240716
  Serious: Yes (Death, Hospitalization)
  Sender: FDA-Public Use
  Company Number: TR-ABBVIE-5789819

PATIENT
  Age: 61 Year
  Sex: Female

DRUGS (4)
  1. CARBIDOPA\LEVODOPA [Suspect]
     Active Substance: CARBIDOPA\LEVODOPA
     Indication: Parkinson^s disease
     Dosage: MORNING DOSE (ML): 7.50 CONTINIOUS DOSE (ML): 4.10 EXTRA DOSE (ML): 1.00
     Route: 050
     Dates: start: 20240110
  2. CARBIDOPA\LEVODOPA [Suspect]
     Active Substance: CARBIDOPA\LEVODOPA
  3. ASPIRIN [Concomitant]
     Active Substance: ASPIRIN
     Indication: Prophylaxis
     Dosage: FORM STRENGTH: 100 MG
     Route: 048
  4. DOPADEX SR [Concomitant]
     Indication: Parkinson^s disease
     Dosage: 50/200 MG
     Route: 048

REACTIONS (2)
  - Cardiac arrest [Fatal]
  - Seizure [Unknown]

NARRATIVE: CASE EVENT DATE: 20240511
